FAERS Safety Report 18553064 (Version 7)
Quarter: 2024Q2

REPORT INFORMATION
  Report Type: Report from Study
  Country: FR (occurrence: FR)
  Receive Date: 20201127
  Receipt Date: 20240412
  Transmission Date: 20240716
  Serious: Yes (Death, Hospitalization, Other)
  Sender: FDA-Public Use
  Company Number: FR-ROCHE-2714737

PATIENT
  Age: 76 Year
  Sex: Male
  Weight: 91 kg

DRUGS (13)
  1. BEVACIZUMAB [Suspect]
     Active Substance: BEVACIZUMAB
     Indication: Hepatocellular carcinoma
     Dosage: 1430 MILLIGRAM, CYCLE 1
     Route: 042
     Dates: start: 20200817
  2. BEVACIZUMAB [Suspect]
     Active Substance: BEVACIZUMAB
     Dosage: 1370 MILLIGRAM, CYCLE 2
     Route: 065
     Dates: start: 20200907
  3. ATEZOLIZUMAB [Suspect]
     Active Substance: ATEZOLIZUMAB
     Indication: Hepatocellular carcinoma
     Dosage: 1200 MILLIGRAM, CYCLE 1
     Route: 042
     Dates: start: 20200817
  4. ATEZOLIZUMAB [Suspect]
     Active Substance: ATEZOLIZUMAB
     Dosage: 1200 GRAM
     Route: 065
     Dates: start: 20200907
  5. PLAVIX [Suspect]
     Active Substance: CLOPIDOGREL BISULFATE
     Indication: Product used for unknown indication
     Dosage: UNK
     Route: 065
  6. BISOPROLOL [Concomitant]
     Active Substance: BISOPROLOL\BISOPROLOL FUMARATE
     Dosage: UNK
  7. ATORVASTATIN [Concomitant]
     Active Substance: ATORVASTATIN
     Dosage: UNK
  8. ASPIRIN [Concomitant]
     Active Substance: ASPIRIN
     Dosage: UNK
  9. HEPARIN [Concomitant]
     Active Substance: HEPARIN SODIUM
  10. TICAGRELOR [Concomitant]
     Active Substance: TICAGRELOR
  11. ASPIRIN DL-LYSINE [Concomitant]
     Active Substance: ASPIRIN DL-LYSINE
  12. MORPHINE [Concomitant]
     Active Substance: MORPHINE
  13. PERFALGAN [Concomitant]
     Active Substance: ACETAMINOPHEN

REACTIONS (9)
  - Vascular stent thrombosis [Fatal]
  - Gastrointestinal haemorrhage [Fatal]
  - Melaena [Unknown]
  - Altered state of consciousness [Unknown]
  - Ascites [Unknown]
  - Asthenia [Unknown]
  - Pleural effusion [Unknown]
  - Cardiac disorder [Unknown]
  - Somnolence [Unknown]
